FAERS Safety Report 16994253 (Version 1)
Quarter: 2019Q4

REPORT INFORMATION
  Report Type: Spontaneous
  Country: US (occurrence: US)
  Receive Date: 20191105
  Receipt Date: 20191105
  Transmission Date: 20200122
  Serious: Yes (Life-Threatening, Hospitalization)
  Sender: FDA-Public Use
  Company Number: US-SCIEGEN PHARMACEUTICALS INC-2019SCILIT00328

PATIENT
  Age: 40 Year
  Sex: Female

DRUGS (3)
  1. DAPSONE. [Suspect]
     Active Substance: DAPSONE
  2. GABAPENTIN CAPSULES [Suspect]
     Active Substance: GABAPENTIN
  3. METHYLENE BLUE. [Interacting]
     Active Substance: METHYLENE BLUE

REACTIONS (2)
  - Methaemoglobinaemia [Recovered/Resolved]
  - Overdose [None]
